FAERS Safety Report 6321838-X (Version None)
Quarter: 2009Q3

REPORT INFORMATION
  Report Type: 
  Country: None (occurrence: None)
  Receive Date: 20090821
  Receipt Date: 20090821
  Transmission Date: 20100115
  Serious: No
  Sender: FDA-Public Use
  Company Number: None

PATIENT
  Age: 71 Year
  Sex: Female
  Weight: 94.3482 kg

DRUGS (2)
  1. TOPIRAMATE [Suspect]
     Indication: MIGRAINE WITH AURA
     Dosage: 50MGS 1 Q DAY ORAL
     Route: 048
     Dates: start: 20090624
  2. TOPIRAMATE [Suspect]
     Indication: NEUROPATHY PERIPHERAL
     Dosage: 50MGS 1 Q DAY ORAL
     Route: 048
     Dates: start: 20090624

REACTIONS (6)
  - DISEASE RECURRENCE [None]
  - MIGRAINE [None]
  - NAUSEA [None]
  - NEURALGIA [None]
  - PRODUCT SUBSTITUTION ISSUE [None]
  - VOMITING [None]
